FAERS Safety Report 15936016 (Version 2)
Quarter: 2019Q1

REPORT INFORMATION
  Report Type: Report from Study
  Country: DE (occurrence: DE)
  Receive Date: 20190208
  Receipt Date: 20190211
  Transmission Date: 20190417
  Serious: Yes (Hospitalization)
  Sender: FDA-Public Use
  Company Number: DE-ROCHE-2260849

PATIENT
  Age: 60 Year
  Sex: Female
  Weight: 53 kg

DRUGS (3)
  1. BEVACIZUMAB. [Suspect]
     Active Substance: BEVACIZUMAB
     Indication: OVARIAN CANCER RECURRENT
     Dosage: DATE OF MOST RECENT DOSE OF BEVACIZUMAB PRIOR TO THE ONSET OF INCREASE OF LIPASE: 28/DEC/2018 (530 M
     Route: 042
     Dates: start: 20181213
  2. BLINDED ATEZOLIZUMAB [Suspect]
     Active Substance: ATEZOLIZUMAB
     Indication: OVARIAN CANCER RECURRENT
     Dosage: DATE OF MOST RECENT DOSE OF ATEZOLIZUMAB PRIOR TO THE ONSET OF INCREASE OF LIPASE: 13/DEC/2018
     Route: 042
     Dates: start: 20181213
  3. PEGYLATED LIPOSOMAL DOXORUBICIN [Suspect]
     Active Substance: DOXORUBICIN
     Indication: OVARIAN CANCER RECURRENT
     Dosage: DATE OF MOST RECENT DOSE OF PEGYLATED LIPOSOMAL DOXORUBICIN PRIOR TO THE ONSET OF INCREASE OF LIPASE
     Route: 042
     Dates: start: 20181213

REACTIONS (1)
  - Lipase increased [Not Recovered/Not Resolved]

NARRATIVE: CASE EVENT DATE: 20190204
